FAERS Safety Report 6356271-8 (Version None)
Quarter: 2009Q3

REPORT INFORMATION
  Report Type: 
  Country: None (occurrence: None)
  Receive Date: 20090914
  Receipt Date: 20090914
  Transmission Date: 20100115
  Serious: Yes (Disabling)
  Sender: FDA-Public Use
  Company Number: None

PATIENT
  Age: 32 Year
  Sex: Male
  Weight: 75 kg

DRUGS (3)
  1. CUBICIN [Suspect]
     Indication: CELLULITIS
     Dosage: 460MG DAILY IV
     Route: 042
     Dates: start: 20090910, end: 20090910
  2. VANCOMYCIN HCL [Suspect]
     Indication: CELLULITIS
     Dosage: 1500MG Q 8 HOURS IV
     Route: 042
     Dates: start: 20090906, end: 20090909
  3. NS [Concomitant]

REACTIONS (2)
  - DRUG INTERACTION [None]
  - PRODUCT DEPOSIT [None]
